FAERS Safety Report 9886233 (Version 2)
Quarter: 2014Q1

REPORT INFORMATION
  Report Type: Spontaneous
  Country: GB (occurrence: GB)
  Receive Date: 20140210
  Receipt Date: 20140307
  Transmission Date: 20141002
  Serious: Yes (Other)
  Sender: FDA-Public Use
  Company Number: GB-WATSON-2014-01893

PATIENT
  Age: 49 Year
  Sex: Female
  Weight: 76 kg

DRUGS (4)
  1. AMLODIPINE BESYLATE (UNKNOWN) [Suspect]
     Indication: HYPERTENSION
     Dosage: 5 MG, UNKNOWN
     Route: 048
     Dates: start: 20131228, end: 20140108
  2. EXTAVIA [Concomitant]
     Indication: PRODUCT USED FOR UNKNOWN INDICATION
     Dosage: UNK
     Route: 065
  3. FULTIUM [Concomitant]
     Indication: PRODUCT USED FOR UNKNOWN INDICATION
     Dosage: UNK
     Route: 065
  4. HYDROXOCOBALAMIN [Concomitant]
     Indication: PRODUCT USED FOR UNKNOWN INDICATION
     Dosage: UNK
     Route: 065

REACTIONS (8)
  - Hemiplegic migraine [Recovered/Resolved]
  - Blindness [Unknown]
  - Hypoaesthesia [Unknown]
  - Hypertension [Recovered/Resolved]
  - Palpitations [Recovered/Resolved]
  - Pollakiuria [Recovered/Resolved]
  - Erythema [Recovered/Resolved]
  - Hot flush [Recovered/Resolved]
